FAERS Safety Report 6569376-3 (Version None)
Quarter: 2010Q1

REPORT INFORMATION
  Report Type: 
  Country: None (occurrence: None)
  Receive Date: 20100204
  Receipt Date: 20100127
  Transmission Date: 20100710
  Serious: Yes (Other)
  Sender: FDA-Public Use
  Company Number: US-BIOGENIDEC-2008BI024817

PATIENT
  Age: 60 Year
  Sex: Female

DRUGS (1)
  1. AVONEX [Suspect]
     Indication: MULTIPLE SCLEROSIS
     Route: 030
     Dates: start: 20050623

REACTIONS (4)
  - BREAST CANCER [None]
  - BREAST CANCER RECURRENT [None]
  - INFLUENZA LIKE ILLNESS [None]
  - METASTATIC NEOPLASM [None]
